FAERS Safety Report 14506686 (Version 1)
Quarter: 2018Q1

REPORT INFORMATION
  Report Type: Spontaneous
  Country: FR (occurrence: FR)
  Receive Date: 20180208
  Receipt Date: 20180208
  Transmission Date: 20180509
  Serious: Yes (Other)
  Sender: FDA-Public Use
  Company Number: FR-TEVA-2018-FR-855558

PATIENT
  Sex: Female

DRUGS (1)
  1. COPAXONE [Suspect]
     Active Substance: GLATIRAMER ACETATE
     Indication: MULTIPLE SCLEROSIS
     Dosage: COPAXONE: UNKNOWN FORM OF STRENGTH
     Route: 065

REACTIONS (10)
  - Malaise [Unknown]
  - Depression [Unknown]
  - Fine motor skill dysfunction [Unknown]
  - Back pain [Unknown]
  - Skin disorder [Unknown]
  - Angioplasty [Unknown]
  - Coordination abnormal [Unknown]
  - Gait disturbance [Unknown]
  - Muscular weakness [Unknown]
  - Walking disability [Unknown]

NARRATIVE: CASE EVENT DATE: 201107
